FAERS Safety Report 4817294-0 (Version None)
Quarter: 2005Q4

REPORT INFORMATION
  Report Type: 
  Country: None (occurrence: None)
  Receive Date: 20051018
  Receipt Date: 20040908
  Transmission Date: 20060501
  Serious: Yes (Death)
  Sender: FDA-Public Use
  Company Number: PHEH2004US09661

PATIENT
  Age: 43 Year
  Sex: Male
  Weight: 81.6 kg

DRUGS (3)
  1. ZOMETA [Suspect]
     Indication: LYMPHOMA
     Dosage: 4 MG, ONCE/SINGLE, INTRAVENOUS
     Route: 042
     Dates: start: 20040806
  2. VELCADE [Concomitant]
  3. DIALYSIS (NO INGREDIENTS/SUBSTANCES) [Concomitant]

REACTIONS (3)
  - HYPOAESTHESIA [None]
  - LYMPHOMA [None]
  - PARAESTHESIA [None]
